FAERS Safety Report 9583395 (Version 1)
Quarter: 2013Q4

REPORT INFORMATION
  Report Type: Spontaneous
  Country: US (occurrence: US)
  Receive Date: 20131002
  Receipt Date: 20131002
  Transmission Date: 20140711
  Serious: No
  Sender: FDA-Public Use
  Company Number: US-AMGEN-USASP2013046540

PATIENT
  Age: 58 Year
  Sex: Female

DRUGS (9)
  1. ENBREL [Suspect]
     Indication: RHEUMATOID ARTHRITIS
     Dosage: UNK
     Route: 065
  2. NEXIUM                             /01479302/ [Concomitant]
     Dosage: UNK
  3. MOBIC [Concomitant]
     Dosage: UNK
  4. PLAQUENIL                          /00072602/ [Concomitant]
     Dosage: UNK
  5. FOLIC ACID [Concomitant]
     Dosage: UNK
  6. VITAMIN D3 [Concomitant]
     Dosage: UNK
  7. ICAPS [Concomitant]
     Dosage: UNK
  8. QVAR [Concomitant]
     Dosage: UNK
  9. PROBIOTICS [Concomitant]
     Dosage: UNK

REACTIONS (1)
  - Drug ineffective [Unknown]
